FAERS Safety Report 14707816 (Version 1)
Quarter: 2018Q2

REPORT INFORMATION
  Report Type: Report from Study
  Country: LB (occurrence: LB)
  Receive Date: 20180403
  Receipt Date: 20180403
  Transmission Date: 20180711
  Serious: Yes (Hospitalization, Other)
  Sender: FDA-Public Use
  Company Number: LB-INCYTE CORPORATION-2018IN002118

PATIENT

DRUGS (1)
  1. JAKAVI [Suspect]
     Active Substance: RUXOLITINIB
     Indication: MYELOFIBROSIS
     Dosage: 15 MG, BID
     Route: 048
     Dates: start: 201802, end: 201802

REACTIONS (4)
  - Thrombocytopenia [Unknown]
  - Bone cancer metastatic [Unknown]
  - Platelet count decreased [Not Recovered/Not Resolved]
  - Second primary malignancy [Unknown]
